FAERS Safety Report 24295083 (Version 1)
Quarter: 2024Q3

REPORT INFORMATION
  Report Type: Spontaneous
  Country: PL (occurrence: PL)
  Receive Date: 20240907
  Receipt Date: 20240907
  Transmission Date: 20241017
  Serious: Yes (Life-Threatening, Other)
  Sender: AUROBINDO
  Company Number: PL-URPL-1-1437-2020

PATIENT
  Age: 59 Year
  Sex: Female

DRUGS (2)
  1. QUETIAPINE [Suspect]
     Active Substance: QUETIAPINE
     Indication: Toxicity to various agents
     Dosage: 80 TABL
     Route: 048
     Dates: start: 20200619
  2. CHLORDIAZEPOXIDE HYDROCHLORIDE [Suspect]
     Active Substance: CHLORDIAZEPOXIDE HYDROCHLORIDE
     Indication: Toxicity to various agents
     Dosage: 60 TABL
     Route: 048
     Dates: start: 20200619

REACTIONS (2)
  - Altered state of consciousness [Recovering/Resolving]
  - Respiratory failure [Recovering/Resolving]
